FAERS Safety Report 4423535-4 (Version None)
Quarter: 2004Q3

REPORT INFORMATION
  Report Type: 
  Country: None (occurrence: None)
  Receive Date: 20040714
  Receipt Date: 20030521
  Transmission Date: 20050211
  Serious: Yes (Hospitalization)
  Sender: FDA-Public Use
  Company Number: 200313207US

PATIENT
  Age: 55 Year
  Sex: Female

DRUGS (3)
  1. TAXOTERE [Suspect]
     Indication: BREAST CANCER
     Dosage: 80-100 MG Q3W IV
     Route: 042
     Dates: start: 20030327, end: 20030327
  2. TAXOTERE [Suspect]
     Indication: BREAST CANCER
  3. ANTIHYPERTENSIVES [Concomitant]

REACTIONS (6)
  - ABDOMINAL PAIN [None]
  - ASTHENIA [None]
  - DIARRHOEA [None]
  - FEBRILE NEUTROPENIA [None]
  - PAIN [None]
  - STOMATITIS [None]
